FAERS Safety Report 8827913 (Version 3)
Quarter: 2013Q1

REPORT INFORMATION
  Report Type: Spontaneous
  Country: US (occurrence: US)
  Receive Date: 20121008
  Receipt Date: 20130128
  Transmission Date: 20140127
  Serious: Yes (Other)
  Sender: FDA-Public Use
  Company Number: US-JNJFOC-20120912950

PATIENT
  Sex: Male
  Weight: 70.31 kg

DRUGS (12)
  1. REMICADE [Suspect]
     Indication: PSORIATIC ARTHROPATHY
     Route: 042
     Dates: start: 2009
  2. CALCIUM 500 + D [Concomitant]
     Indication: ARTHRITIS
     Dosage: 1000 UNITS
     Route: 065
  3. SULFASALAZINE [Concomitant]
     Indication: ARTHRITIS
     Dosage: ALSO REPORTED AS 1000 MG
     Route: 048
  4. FOLIC ACID [Concomitant]
     Indication: ARTHRITIS
     Route: 048
  5. AMITRIPTYLINE [Concomitant]
     Indication: SLEEP DISORDER
     Route: 048
  6. ATENOLOL [Concomitant]
     Indication: BLOOD PRESSURE
     Route: 048
  7. LOSARTAN POTASSIUM [Concomitant]
     Route: 048
  8. CARBIDOPA [Concomitant]
     Indication: PARKINSON^S DISEASE
     Route: 048
  9. OMEPRAZOLE [Concomitant]
     Route: 065
  10. VALACYCLOVIR [Concomitant]
     Route: 065
  11. PREDNISONE [Concomitant]
     Route: 065
  12. BABY ASPIRIN [Concomitant]
     Route: 065

REACTIONS (1)
  - VIIth nerve paralysis [Recovered/Resolved]
